FAERS Safety Report 8829629 (Version 1)
Quarter: 2012Q4

REPORT INFORMATION
  Report Type: Spontaneous
  Country: US (occurrence: None)
  Receive Date: 20121005
  Receipt Date: 20121005
  Transmission Date: 20130627
  Serious: No
  Sender: FDA-Public Use
  Company Number: None

PATIENT
  Age: 78 Year
  Sex: Male

DRUGS (10)
  1. REVLIMID 5 MG CELGENE [Suspect]
     Dosage: Revlimid 5 mg daily orally
     Route: 048
     Dates: start: 200907
  2. METOPROLOL [Concomitant]
  3. AMLODIPINE [Concomitant]
  4. COLCHICINE [Concomitant]
  5. CALCITRIOL [Concomitant]
  6. CLONIDINE [Concomitant]
  7. SIMVASTATIN [Concomitant]
  8. CHLORTHALIDONE [Concomitant]
  9. ALLOPURINOL [Concomitant]
  10. CLOPIDOGREL [Concomitant]

REACTIONS (1)
  - Platelet count decreased [None]
